FAERS Safety Report 7085081-1 (Version None)
Quarter: 2010Q4

REPORT INFORMATION
  Report Type: 
  Country: None (occurrence: None)
  Receive Date: 20101105
  Receipt Date: 20101101
  Transmission Date: 20110411
  Serious: Yes (Other)
  Sender: FDA-Public Use
  Company Number: CA-WYE-G06903010

PATIENT
  Age: 54 Year
  Sex: Male

DRUGS (5)
  1. VENLAFAXINE HYDROCHLORIDE [Suspect]
     Route: 048
     Dates: start: 20101006, end: 20101012
  2. VENLAFAXINE HYDROCHLORIDE [Suspect]
     Route: 048
     Dates: start: 20101013, end: 20101019
  3. VENLAFAXINE HYDROCHLORIDE [Suspect]
     Route: 048
     Dates: start: 20101020
  4. OXAZEPAM [Concomitant]
  5. DELATESTRYL [Concomitant]

REACTIONS (2)
  - CONCOMITANT DISEASE PROGRESSION [None]
  - MACULAR DEGENERATION [None]
